FAERS Safety Report 25405880 (Version 1)
Quarter: 2025Q2

REPORT INFORMATION
  Report Type: Spontaneous
  Country: US (occurrence: None)
  Receive Date: 20250605
  Receipt Date: 20250605
  Transmission Date: 20250717
  Serious: Yes (Death)
  Sender: FDA-CTU
  Company Number: None

PATIENT
  Age: 39 Year
  Sex: Male
  Weight: 111.13 kg

DRUGS (11)
  1. REPATHA [Suspect]
     Active Substance: EVOLOCUMAB
     Indication: Hyperlipidaemia
     Route: 058
     Dates: start: 20241217
  2. VITAMIN B12 [Concomitant]
     Active Substance: CYANOCOBALAMIN
  3. FENOFIBRATE [Concomitant]
     Active Substance: FENOFIBRATE
  4. SYNJARDY [Concomitant]
     Active Substance: EMPAGLIFLOZIN\METFORMIN HYDROCHLORIDE
  5. FLUCONAZOLE [Concomitant]
     Active Substance: FLUCONAZOLE
  6. VITAMIN D2 [Concomitant]
     Active Substance: ERGOCALCIFEROL
  7. LEVOTHYROXINE [Concomitant]
     Active Substance: LEVOTHYROXINE
  8. REPATHA [Concomitant]
     Active Substance: EVOLOCUMAB
  9. NEBIVOLOL [Concomitant]
     Active Substance: NEBIVOLOL
  10. ROSUVASTATIN [Concomitant]
     Active Substance: ROSUVASTATIN
  11. VASCEPA [Concomitant]
     Active Substance: ICOSAPENT ETHYL

REACTIONS (2)
  - Pancreatitis [None]
  - Pulmonary oedema [None]

NARRATIVE: CASE EVENT DATE: 20250526
